FAERS Safety Report 7685060-7 (Version None)
Quarter: 2011Q3

REPORT INFORMATION
  Report Type: 
  Country: None (occurrence: None)
  Receive Date: 20110811
  Receipt Date: 20110719
  Transmission Date: 20111222
  Serious: Yes (Death)
  Sender: FDA-Public Use
  Company Number: 2011PROUSA00474

PATIENT
  Age: 64 Year
  Sex: Male
  Weight: 72.1 kg

DRUGS (10)
  1. PROVENGE [Suspect]
  2. ZOMETA [Concomitant]
  3. ELIGARD [Concomitant]
  4. FLEXERIL [Concomitant]
  5. TYLENOL /00020001/ (ACETAMINOPHEN) [Concomitant]
  6. PROVENGE [Suspect]
  7. ADVIL /00044201/) (IBUPROFEN) [Concomitant]
  8. PROVENGE [Suspect]
     Indication: PROSTATE CANCER METASTATIC
     Dosage: 250 ML, SINGLE, INTRAVENOUS, 250 ML, SINGLE, INTRAVENOUS, 250 ML, SINGLE, INTRAVENOUS
     Route: 042
     Dates: start: 20101122, end: 20101122
  9. PROVENGE [Suspect]
     Indication: PROSTATE CANCER METASTATIC
     Dosage: 250 ML, SINGLE, INTRAVENOUS, 250 ML, SINGLE, INTRAVENOUS, 250 ML, SINGLE, INTRAVENOUS
     Route: 042
     Dates: start: 20110106, end: 20110106
  10. PROVENGE [Suspect]
     Indication: PROSTATE CANCER METASTATIC
     Dosage: 250 ML, SINGLE, INTRAVENOUS, 250 ML, SINGLE, INTRAVENOUS, 250 ML, SINGLE, INTRAVENOUS
     Route: 042
     Dates: start: 20101213, end: 20101213

REACTIONS (1)
  - CEREBRAL HAEMORRHAGE [None]
